FAERS Safety Report 23050712 (Version 1)
Quarter: 2023Q4

REPORT INFORMATION
  Report Type: Spontaneous
  Country: US (occurrence: None)
  Receive Date: 20231009
  Receipt Date: 20231009
  Transmission Date: 20240110
  Serious: Yes (Death)
  Sender: FDA-Public Use
  Company Number: None

PATIENT
  Age: 67 Year
  Sex: Male

DRUGS (6)
  1. REPATHA [Suspect]
     Active Substance: EVOLOCUMAB
     Indication: Hyperlipidaemia
     Dosage: FREQUENCY : EVERY OTHER WEEK;?
     Route: 058
     Dates: start: 20230222, end: 20231007
  2. BRIVIACT [Concomitant]
     Active Substance: BRIVARACETAM
  3. ELIQUIS [Concomitant]
     Active Substance: APIXABAN
  4. UREA [Concomitant]
     Active Substance: UREA
  5. LAMOTRIGINE [Concomitant]
     Active Substance: LAMOTRIGINE
  6. EZETIMIBE [Concomitant]
     Active Substance: EZETIMIBE

REACTIONS (1)
  - Death [None]

NARRATIVE: CASE EVENT DATE: 20231007
